FAERS Safety Report 4676371-8 (Version None)
Quarter: 2005Q2

REPORT INFORMATION
  Report Type: 
  Country: None (occurrence: None)
  Receive Date: 20050527
  Receipt Date: 20050228
  Transmission Date: 20051028
  Serious: No
  Sender: FDA-Public Use
  Company Number: US-GLAXOSMITHKLINE-A0547582A

PATIENT
  Age: 31 Year
  Sex: Female

DRUGS (4)
  1. WELLBUTRIN XL [Suspect]
     Indication: DEPRESSION
     Dosage: 450MG PER DAY
     Route: 048
  2. NEXIUM [Concomitant]
  3. ALLEGRA [Concomitant]
  4. MULTI-VITAMIN [Concomitant]

REACTIONS (5)
  - AGITATION [None]
  - DRUG INEFFECTIVE [None]
  - IRRITABILITY [None]
  - LIBIDO DECREASED [None]
  - PRURITUS [None]
